FAERS Safety Report 16094687 (Version 1)
Quarter: 2019Q1

REPORT INFORMATION
  Report Type: Spontaneous
  Country: JP (occurrence: JP)
  Receive Date: 20190320
  Receipt Date: 20190320
  Transmission Date: 20190418
  Serious: Yes (Death, Hospitalization)
  Sender: FDA-Public Use
  Company Number: PHJP2019JP003025

PATIENT

DRUGS (1)
  1. VOTRIENT [Suspect]
     Active Substance: PAZOPANIB HYDROCHLORIDE
     Indication: SOFT TISSUE SARCOMA
     Dosage: 400 MG, UNK
     Route: 048
     Dates: start: 20190110, end: 20190203

REACTIONS (3)
  - Hepatic function abnormal [Fatal]
  - Blood bilirubin increased [Fatal]
  - Hepatic failure [Fatal]

NARRATIVE: CASE EVENT DATE: 20190125
